FAERS Safety Report 18221598 (Version 1)
Quarter: 2020Q3

REPORT INFORMATION
  Report Type: Report from Study
  Country: US (occurrence: US)
  Receive Date: 20200902
  Receipt Date: 20200902
  Transmission Date: 20201103
  Serious: Yes (Hospitalization)
  Sender: FDA-Public Use
  Company Number: US-EISAI MEDICAL RESEARCH-EC-2020-068549

PATIENT
  Age: 33 Year
  Sex: Female
  Weight: 69 kg

DRUGS (11)
  1. VITAMIN D3 [Concomitant]
     Active Substance: CHOLECALCIFEROL
  2. AMLODIPINE [Concomitant]
     Active Substance: AMLODIPINE BESYLATE
  3. CLARITIN [Concomitant]
     Active Substance: LORATADINE
  4. COENZYME Q10 [Concomitant]
     Active Substance: DIETARY SUPPLEMENT\UBIDECARENONE
  5. LEVOTHYROXINE. [Concomitant]
     Active Substance: LEVOTHYROXINE
  6. PROPRANOLOL [Concomitant]
     Active Substance: PROPRANOLOL HYDROCHLORIDE
  7. DURAGESIC [Concomitant]
     Active Substance: FENTANYL
  8. LENVIMA [Suspect]
     Active Substance: LENVATINIB
     Indication: ADRENAL GLAND CANCER METASTATIC
     Route: 048
     Dates: start: 20200102, end: 2020
  9. LENVIMA [Suspect]
     Active Substance: LENVATINIB
     Route: 048
     Dates: start: 2020, end: 202008
  10. NORCO [Concomitant]
     Active Substance: ACETAMINOPHEN\HYDROCODONE BITARTRATE
  11. LENVIMA [Suspect]
     Active Substance: LENVATINIB
     Route: 048
     Dates: start: 202008

REACTIONS (7)
  - Diarrhoea [Not Recovered/Not Resolved]
  - Abdominal pain [Not Recovered/Not Resolved]
  - Headache [Not Recovered/Not Resolved]
  - Vomiting [Not Recovered/Not Resolved]
  - Back pain [Not Recovered/Not Resolved]
  - Blood pressure increased [Recovering/Resolving]
  - Nausea [Not Recovered/Not Resolved]

NARRATIVE: CASE EVENT DATE: 2020
